FAERS Safety Report 7073761-3 (Version None)
Quarter: 2010Q4

REPORT INFORMATION
  Report Type: 
  Country: None (occurrence: None)
  Receive Date: 20101029
  Receipt Date: 20100811
  Transmission Date: 20110411
  Serious: No
  Sender: FDA-Public Use
  Company Number: A0875185A

PATIENT
  Age: 73 Year
  Sex: Female

DRUGS (4)
  1. SEREVENT [Suspect]
  2. ADVAIR DISKUS 100/50 [Suspect]
     Indication: ASTHMA
     Dosage: 1PUFF TWICE PER DAY
     Route: 055
     Dates: start: 20100806
  3. SYNTHROID [Concomitant]
  4. VIVONEX [Concomitant]

REACTIONS (1)
  - DYSPHONIA [None]
